FAERS Safety Report 8336556-6 (Version None)
Quarter: 2012Q2

REPORT INFORMATION
  Report Type: 
  Country: None (occurrence: None)
  Receive Date: 20120504
  Receipt Date: 20111221
  Transmission Date: 20120825
  Serious: Yes (Hospitalization)
  Sender: FDA-Public Use
  Company Number: ES-JNJFOC-20111209855

PATIENT
  Age: 75 Year
  Sex: Female
  Weight: 62 kg

DRUGS (7)
  1. DEFLAZACORT [Concomitant]
     Indication: ARTHRITIS
     Route: 048
     Dates: start: 19970314
  2. METHOTREXATE [Concomitant]
     Indication: ARTHRITIS
     Route: 058
     Dates: start: 20050505
  3. FOLIC ACID [Concomitant]
     Indication: ARTHRITIS
     Route: 048
     Dates: start: 19970310
  4. BUPRENORPHINE [Concomitant]
     Indication: ARTHRITIS
     Route: 062
  5. GOLIMUMAB [Suspect]
     Route: 058
     Dates: start: 20100705
  6. OMEPRAZOLE [Concomitant]
     Indication: GASTROINTESTINAL DISORDER THERAPY
     Route: 048
     Dates: start: 19970314
  7. GOLIMUMAB [Suspect]
     Indication: RHEUMATOID ARTHRITIS
     Route: 058
     Dates: start: 20110628

REACTIONS (1)
  - CELLULITIS [None]
